FAERS Safety Report 13468047 (Version 3)
Quarter: 2019Q4

REPORT INFORMATION
  Report Type: Spontaneous
  Country: US (occurrence: US)
  Receive Date: 20170421
  Receipt Date: 20191023
  Transmission Date: 20200122
  Serious: Yes (Other)
  Sender: FDA-Public Use
  Company Number: US-MUNDIPHARMA DS AND PHARMACOVIGILANCE-USA-2016-0134867

PATIENT
  Sex: Female

DRUGS (2)
  1. OXYCONTIN [Suspect]
     Active Substance: OXYCODONE HYDROCHLORIDE
     Indication: NECK PAIN
     Dosage: UNK
     Route: 048
  2. OXYCONTIN [Suspect]
     Active Substance: OXYCODONE HYDROCHLORIDE
     Indication: BACK PAIN

REACTIONS (9)
  - Cold sweat [Unknown]
  - Pain [Unknown]
  - Drug abuse [Recovered/Resolved]
  - Influenza like illness [Unknown]
  - Drug dependence [Recovered/Resolved]
  - Feeling cold [Unknown]
  - Unevaluable event [Recovered/Resolved]
  - Drug withdrawal syndrome [Unknown]
  - Skin warm [Unknown]
